FAERS Safety Report 9127726 (Version 1)
Quarter: 2013Q1

REPORT INFORMATION
  Report Type: Spontaneous
  Country: US (occurrence: US)
  Receive Date: 20130228
  Receipt Date: 20130228
  Transmission Date: 20140127
  Serious: No
  Sender: FDA-Public Use
  Company Number: US-PFIZER INC-2013070895

PATIENT
  Age: 83 Year
  Sex: Female

DRUGS (4)
  1. INDERAL [Suspect]
     Dosage: UNK
  2. LIPITOR [Suspect]
     Dosage: UNK
  3. EFFEXOR [Suspect]
     Dosage: UNK
  4. ULTRAM [Suspect]
     Dosage: UNK

REACTIONS (2)
  - Rash [Unknown]
  - Pruritus [Unknown]
